FAERS Safety Report 26166602 (Version 1)
Quarter: 2025Q4

REPORT INFORMATION
  Report Type: Spontaneous
  Country: IL (occurrence: IL)
  Receive Date: 20251217
  Receipt Date: 20251217
  Transmission Date: 20260118
  Serious: Yes (Hospitalization, Other)
  Sender: TEVA
  Company Number: IL-TEVA-VS-3401515

PATIENT
  Age: 57 Year
  Sex: Male

DRUGS (1)
  1. BOSENTAN [Suspect]
     Active Substance: BOSENTAN
     Indication: Pulmonary hypertension
     Dosage: TEVA
     Route: 065

REACTIONS (4)
  - Scleroderma [Unknown]
  - Product availability issue [Unknown]
  - Cardiac failure [Unknown]
  - Product use in unapproved indication [Unknown]

NARRATIVE: CASE EVENT DATE: 20250101
